FAERS Safety Report 8928962 (Version 1)
Quarter: 2012Q4

REPORT INFORMATION
  Report Type: Spontaneous
  Country: US (occurrence: None)
  Receive Date: 20121126
  Receipt Date: 20121126
  Transmission Date: 20130627
  Serious: Yes (Other)
  Sender: FDA-Public Use
  Company Number: None

PATIENT
  Age: 70 Year
  Sex: Female
  Weight: 83.92 kg

DRUGS (2)
  1. IPRATROPIUM BROMIDE .5 MG [Suspect]
     Indication: BRONCHITIS
     Dates: start: 20120927, end: 20121028
  2. IPRATROPIUM BROMIDE .5 MG [Suspect]
     Indication: COUGH
     Dates: start: 20120927, end: 20121028

REACTIONS (14)
  - Malaise [None]
  - Oedema mouth [None]
  - Gingival swelling [None]
  - Lip swelling [None]
  - Mastication disorder [None]
  - Device issue [None]
  - Dysphagia [None]
  - Oropharyngeal pain [None]
  - Headache [None]
  - Dysuria [None]
  - Pollakiuria [None]
  - Blood urine present [None]
  - Eyelids pruritus [None]
  - Ill-defined disorder [None]
